FAERS Safety Report 8470857-6 (Version None)
Quarter: 2012Q2

REPORT INFORMATION
  Report Type: 
  Country: None (occurrence: None)
  Receive Date: 20120627
  Receipt Date: 20120529
  Transmission Date: 20120825
  Serious: Yes (Death)
  Sender: FDA-Public Use
  Company Number: CN-ASTELLAS-2012JP005761

PATIENT
  Sex: Male

DRUGS (3)
  1. PREDNISONE TAB [Concomitant]
     Dosage: UNK
     Route: 065
  2. MYCOPHENOLATE MOFETIL [Concomitant]
     Dosage: UNK
     Route: 065
  3. TACROLIMUS [Suspect]
     Indication: RENAL TRANSPLANT
     Dosage: 2 MG, UNKNOWN/D
     Route: 048
     Dates: start: 20110219, end: 20110604

REACTIONS (2)
  - HEPATIC FUNCTION ABNORMAL [None]
  - HEPATIC ENCEPHALOPATHY [None]
